FAERS Safety Report 4348979-0 (Version None)
Quarter: 2004Q2

REPORT INFORMATION
  Report Type: 
  Country: None (occurrence: None)
  Receive Date: 20040428
  Receipt Date: 20040315
  Transmission Date: 20050107
  Serious: Yes (Death, Hospitalization, Other)
  Sender: FDA-Public Use
  Company Number: JP-BRISTOL-MYERS SQUIBB COMPANY-12532198

PATIENT
  Age: 74 Year
  Sex: Male

DRUGS (1)
  1. HYDREA [Suspect]
     Indication: ESSENTIAL THROMBOCYTHAEMIA
     Dosage: 500~1500 MG/DAY
     Route: 048
     Dates: start: 20010101, end: 20020101

REACTIONS (4)
  - ACUTE MYELOID LEUKAEMIA [None]
  - DEPRESSED LEVEL OF CONSCIOUSNESS [None]
  - LEUKAEMIA [None]
  - OEDEMA PERIPHERAL [None]
